FAERS Safety Report 4284828-7 (Version None)
Quarter: 2004Q1

REPORT INFORMATION
  Report Type: 
  Country: None (occurrence: None)
  Receive Date: 20040202
  Receipt Date: 20040120
  Transmission Date: 20041129
  Serious: Yes (Other)
  Sender: FDA-Public Use
  Company Number: 30018017-NA01-1

PATIENT
  Age: 59 Year
  Sex: Female
  Weight: 62.3 kg

DRUGS (6)
  1. EXTRANEAL [Suspect]
     Indication: PERITONEAL DIALYSIS
     Dosage: 7.5% ICODEXTRIN 1.5L QD IP
     Dates: start: 20031120, end: 20040113
  2. DIANEAL [Concomitant]
  3. EPOGEN [Concomitant]
  4. NICORANDIL [Concomitant]
  5. QUERCUS SALICINA [Concomitant]
  6. ALLOPURINOL [Concomitant]

REACTIONS (4)
  - ANAEMIA [None]
  - DYSPNOEA [None]
  - THROMBOCYTOPENIA [None]
  - WHITE BLOOD CELL COUNT DECREASED [None]
